FAERS Safety Report 8263010-2 (Version None)
Quarter: 2012Q2

REPORT INFORMATION
  Report Type: 
  Country: None (occurrence: None)
  Receive Date: 20120405
  Receipt Date: 20120329
  Transmission Date: 20120825
  Serious: Yes (Other)
  Sender: FDA-Public Use
  Company Number: DE-B.I. PHARMACEUTICALS,INC./RIDGEFIELD-2012-DE-00910DE

PATIENT
  Sex: Female
  Weight: 68 kg

DRUGS (2)
  1. PRADAXA [Suspect]
     Indication: CEREBROVASCULAR ACCIDENT PROPHYLAXIS
  2. PRADAXA [Suspect]
     Indication: ATRIAL FIBRILLATION

REACTIONS (13)
  - NAUSEA [None]
  - VOMITING [None]
  - DIARRHOEA [None]
  - ATRIAL FIBRILLATION [None]
  - ERYTHEMA [None]
  - ASTHENIA [None]
  - SOMNOLENCE [None]
  - ABDOMINAL PAIN [None]
  - LOSS OF CONSCIOUSNESS [None]
  - SLEEP ATTACKS [None]
  - FLUSHING [None]
  - HYPERHIDROSIS [None]
  - HEADACHE [None]
